FAERS Safety Report 12079521 (Version 3)
Quarter: 2016Q1

REPORT INFORMATION
  Report Type: Spontaneous
  Country: GB (occurrence: GB)
  Receive Date: 20160216
  Receipt Date: 20160229
  Transmission Date: 20160526
  Serious: Yes (Other)
  Sender: FDA-Public Use
  Company Number: GB-PFIZER INC-2016089781

PATIENT
  Age: 50 Year
  Sex: Female

DRUGS (2)
  1. CHAMPIX [Suspect]
     Active Substance: VARENICLINE TARTRATE
     Dosage: 1 MG, 2X/DAY (TWICE PER DAY)
     Dates: start: 20151217
  2. CHAMPIX [Suspect]
     Active Substance: VARENICLINE TARTRATE
     Dosage: 1 MG, DAILY (PER DAY)
     Dates: start: 20151223

REACTIONS (7)
  - Aggression [Recovered/Resolved]
  - Amnesia [Recovered/Resolved]
  - Physical assault [Recovered/Resolved]
  - Fatigue [Unknown]
  - Arthralgia [Unknown]
  - Personality change [Recovered/Resolved]
  - Contusion [Recovered/Resolved]

NARRATIVE: CASE EVENT DATE: 20160205
